FAERS Safety Report 19078325 (Version 1)
Quarter: 2021Q1

REPORT INFORMATION
  Report Type: Spontaneous
  Country: US (occurrence: US)
  Receive Date: 20210331
  Receipt Date: 20210331
  Transmission Date: 20210420
  Serious: No
  Sender: FDA-Public Use
  Company Number: US-JNJFOC-20210351108

PATIENT
  Age: 39 Year
  Sex: Male

DRUGS (1)
  1. REMICADE [Suspect]
     Active Substance: INFLIXIMAB
     Indication: PSORIATIC ARTHROPATHY
     Route: 042

REACTIONS (6)
  - Arthralgia [Unknown]
  - Diarrhoea [Unknown]
  - Urinary hesitation [Unknown]
  - Myalgia [Unknown]
  - Anxiety [Unknown]
  - Infusion related reaction [Unknown]
